FAERS Safety Report 21273616 (Version 3)
Quarter: 2023Q2

REPORT INFORMATION
  Report Type: Spontaneous
  Country: US (occurrence: US)
  Receive Date: 20220831
  Receipt Date: 20230516
  Transmission Date: 20230722
  Serious: Yes (Other)
  Sender: FDA-Public Use
  Company Number: US-PFIZER INC-202101275351

PATIENT
  Age: 68 Year
  Sex: Female

DRUGS (1)
  1. XELJANZ XR [Suspect]
     Active Substance: TOFACITINIB CITRATE
     Dosage: 11 MG, 1X/DAY

REACTIONS (4)
  - Lung carcinoma cell type unspecified stage IV [Unknown]
  - Brain neoplasm [Unknown]
  - Hepatic cancer [Unknown]
  - Wheezing [Unknown]

NARRATIVE: CASE EVENT DATE: 20230101
